FAERS Safety Report 5367015-0 (Version None)
Quarter: 2007Q2

REPORT INFORMATION
  Report Type: 
  Country: None (occurrence: None)
  Receive Date: 20070619
  Receipt Date: 20070619
  Transmission Date: 20071010
  Serious: Yes (Life-Threatening)
  Sender: FDA-Public Use
  Company Number: None

PATIENT
  Sex: Female
  Weight: 58.9676 kg

DRUGS (2)
  1. PROVENTIL-HFA [Suspect]
     Indication: ASTHMA
     Dosage: 2 PUFFS 4 TIMES DAILY ORAL
     Route: 048
     Dates: start: 20070426
  2. PROVENTIL-HFA [Suspect]
     Indication: BRONCHITIS
     Dosage: 2 PUFFS 4 TIMES DAILY ORAL
     Route: 048
     Dates: start: 20070426

REACTIONS (2)
  - BRONCHOSPASM [None]
  - RESPIRATORY ARREST [None]
